FAERS Safety Report 6591276-3 (Version None)
Quarter: 2010Q1

REPORT INFORMATION
  Report Type: 
  Country: None (occurrence: None)
  Receive Date: 20100219
  Receipt Date: 20100209
  Transmission Date: 20100710
  Serious: Yes (Hospitalization)
  Sender: FDA-Public Use
  Company Number: US-PFIZER INC-2010017414

PATIENT
  Age: 76 Year
  Sex: Female

DRUGS (8)
  1. XANAX [Suspect]
  2. PROTONIX [Suspect]
     Dosage: UNK
  3. EFFEXOR [Suspect]
  4. SYNTHROID [Suspect]
  5. MIRALAX [Suspect]
  6. AMBIEN [Suspect]
  7. OXYCODONE [Suspect]
  8. DASATINIB [Suspect]
     Indication: BREAST CANCER METASTATIC
     Dosage: 70 MG, 1 DAY
     Route: 048
     Dates: start: 20091030, end: 20100105

REACTIONS (1)
  - URINARY TRACT INFECTION [None]
